FAERS Safety Report 13922867 (Version 1)
Quarter: 2017Q3

REPORT INFORMATION
  Report Type: Report from Study
  Country: DE (occurrence: DE)
  Receive Date: 20170830
  Receipt Date: 20170830
  Transmission Date: 20171127
  Serious: Yes (Other)
  Sender: FDA-Public Use
  Company Number: DE-BIOGEN-2016BI00303714

PATIENT
  Sex: Female
  Weight: 51 kg

DRUGS (1)
  1. TECFIDERA [Suspect]
     Active Substance: DIMETHYL FUMARATE
     Indication: MULTIPLE SCLEROSIS
     Route: 048
     Dates: start: 20160414, end: 20161005

REACTIONS (2)
  - Maternal exposure during pregnancy [Recovered/Resolved]
  - Benign hydatidiform mole [Recovered/Resolved]
